FAERS Safety Report 7639529-1 (Version None)
Quarter: 2011Q3

REPORT INFORMATION
  Report Type: 
  Country: None (occurrence: None)
  Receive Date: 20110727
  Receipt Date: 20110719
  Transmission Date: 20111222
  Serious: Yes (Hospitalization)
  Sender: FDA-Public Use
  Company Number: JP-GLAXOSMITHKLINE-B0728799A

PATIENT
  Sex: Male

DRUGS (11)
  1. REQUIP [Suspect]
     Indication: PARKINSON'S DISEASE
     Dosage: 1.5MG PER DAY
     Route: 048
     Dates: start: 20080324, end: 20080728
  2. MADOPAR [Concomitant]
     Indication: PARKINSON'S DISEASE
     Dosage: 100MG PER DAY
     Route: 048
     Dates: start: 20080407, end: 20080427
  3. REQUIP [Suspect]
     Dosage: 1MG PER DAY
     Route: 048
     Dates: start: 20080729, end: 20090105
  4. REQUIP [Suspect]
     Dosage: 2MG PER DAY
     Route: 048
     Dates: start: 20090210
  5. REQUIP [Suspect]
     Dosage: .5MG PER DAY
     Route: 048
     Dates: start: 20090106, end: 20090209
  6. MADOPAR [Concomitant]
     Dosage: 200MG PER DAY
     Route: 048
     Dates: start: 20080623, end: 20081027
  7. MADOPAR [Concomitant]
     Dosage: 200MG PER DAY
     Route: 048
     Dates: start: 20080428, end: 20080525
  8. MADOPAR [Concomitant]
     Dosage: 300MG PER DAY
     Route: 048
     Dates: start: 20080526, end: 20080622
  9. MADOPAR [Concomitant]
     Dosage: 300MG PER DAY
     Route: 048
     Dates: start: 20081028
  10. SYMMETREL [Concomitant]
     Indication: PARKINSON'S DISEASE
     Route: 048
  11. OLMESARTAN MEDOXOMIL [Concomitant]
     Indication: HYPERTENSION
     Route: 048

REACTIONS (2)
  - SUDDEN ONSET OF SLEEP [None]
  - ANGINA PECTORIS [None]
